FAERS Safety Report 5327890-2 (Version None)
Quarter: 2007Q2

REPORT INFORMATION
  Report Type: 
  Country: None (occurrence: None)
  Receive Date: 20070517
  Receipt Date: 20070509
  Transmission Date: 20071010
  Serious: Yes (Hospitalization)
  Sender: FDA-Public Use
  Company Number: CH-PFIZER INC-2007037519

PATIENT
  Sex: Female

DRUGS (15)
  1. DALTEPARIN SODIUM [Suspect]
     Route: 058
  2. CLINDAMYCIN HYDROCHLORIDE [Suspect]
     Indication: OSTEOMYELITIS
     Route: 048
  3. SINEMET [Suspect]
     Indication: PARKINSON'S DISEASE
     Dosage: TEXT:25/100MG TABLETS, 2 TABLETS-FREQ:EVERY DAY
     Route: 048
  4. SINEMET [Suspect]
     Dosage: TEXT:25/250MG TABLETS, 2 1/2 TABLETS-FREQ:EVERY DAY
     Route: 048
  5. DAFALGAN [Suspect]
     Indication: PAIN
     Route: 048
     Dates: start: 20070306, end: 20070313
  6. CIPROFLOXACIN HYDROCHLORIDE [Suspect]
     Indication: URINARY TRACT INFECTION
     Route: 048
     Dates: start: 20070306, end: 20070312
  7. AUGMENTIN '125' [Suspect]
     Indication: OSTEOMYELITIS
     Dosage: FREQ:BID
     Route: 042
     Dates: start: 20070319, end: 20070321
  8. DOMPERIDONE [Concomitant]
     Route: 048
  9. BRUFEN [Concomitant]
     Route: 048
     Dates: start: 20070313, end: 20070330
  10. PENICILLIN G ^HOECHST^ [Concomitant]
     Route: 042
     Dates: start: 20070321, end: 20070402
  11. PANTOZOL [Concomitant]
     Route: 048
     Dates: start: 20070324, end: 20070404
  12. TORSEMIDE [Concomitant]
     Route: 048
     Dates: start: 20070402, end: 20070404
  13. EFFORTIL [Concomitant]
     Route: 048
  14. CLOZAPINE [Concomitant]
     Route: 048
  15. EFFEXOR [Concomitant]
     Route: 048

REACTIONS (1)
  - HEPATOCELLULAR DAMAGE [None]
